FAERS Safety Report 9694962 (Version 7)
Quarter: 2020Q3

REPORT INFORMATION
  Report Type: Report from Study
  Country: BR (occurrence: BR)
  Receive Date: 20131119
  Receipt Date: 20200701
  Transmission Date: 20201103
  Serious: Yes (Hospitalization, Disabling, Other)
  Sender: FDA-Public Use
  Company Number: BR-ROCHE-1235760

PATIENT
  Age: 63 Year
  Sex: Female
  Weight: 66 kg

DRUGS (13)
  1. FAMOTIDINE. [Concomitant]
     Active Substance: FAMOTIDINE
     Route: 065
  2. KETOPROFEN. [Concomitant]
     Active Substance: KETOPROFEN
     Route: 065
  3. DULOXETINE. [Concomitant]
     Active Substance: DULOXETINE
  4. ALUMINUM HYDROXIDE [ALUMINIUM HYDROXIDE] [Concomitant]
     Active Substance: ALUMINUM HYDROXIDE
  5. NIMODIPINE. [Concomitant]
     Active Substance: NIMODIPINE
  6. MABTHERA [Suspect]
     Active Substance: RITUXIMAB
     Indication: RHEUMATOID ARTHRITIS
     Dosage: ON 22/JUL/2015, ADMINISTERED RECENT RITUXIMAB INFUSION.
     Route: 042
     Dates: start: 20140501
  7. ACTEMRA [Suspect]
     Active Substance: TOCILIZUMAB
     Indication: RHEUMATOID ARTHRITIS
     Dosage: LAST DOSE TAKEN ON 22/JUL/2013
     Route: 042
     Dates: start: 20130503, end: 201312
  8. MAGNESIUM HYDROXIDE. [Concomitant]
     Active Substance: MAGNESIUM HYDROXIDE
     Route: 065
  9. IBUPROFEN. [Concomitant]
     Active Substance: IBUPROFEN
     Route: 065
  10. NEOSALDINA [CAFFEINE;ISOMETHEPTENE;METAMIZOLE SODIUM] [Concomitant]
     Indication: HEADACHE
  11. OMEPRAZOLE. [Concomitant]
     Active Substance: OMEPRAZOLE
     Indication: GASTRIC DISORDER
  12. MELOXICAM. [Concomitant]
     Active Substance: MELOXICAM
  13. ALPRAZOLAM. [Concomitant]
     Active Substance: ALPRAZOLAM
     Route: 065

REACTIONS (14)
  - Drug ineffective [Unknown]
  - Rheumatoid arthritis [Not Recovered/Not Resolved]
  - Pneumonia [Recovered/Resolved]
  - Cataract [Recovered/Resolved with Sequelae]
  - Joint swelling [Not Recovered/Not Resolved]
  - Swelling [Recovering/Resolving]
  - Rheumatoid factor increased [Unknown]
  - Visual impairment [Not Recovered/Not Resolved]
  - Peripheral swelling [Unknown]
  - Osteoporosis [Not Recovered/Not Resolved]
  - Osteopenia [Not Recovered/Not Resolved]
  - Peripheral swelling [Not Recovered/Not Resolved]
  - Joint swelling [Unknown]
  - Rash erythematous [Unknown]

NARRATIVE: CASE EVENT DATE: 20141016
